FAERS Safety Report 8387566-4 (Version None)
Quarter: 2012Q2

REPORT INFORMATION
  Report Type: 
  Country: None (occurrence: None)
  Receive Date: 20120525
  Receipt Date: 20120523
  Transmission Date: 20120825
  Serious: Yes (Death, Other)
  Sender: FDA-Public Use
  Company Number: PHHY2011CR84524

PATIENT
  Sex: Female

DRUGS (3)
  1. DIOVAN [Suspect]
     Indication: HYPERTENSION
     Dosage: 320 MG, DAILY
  2. ANXIOLYTICS [Concomitant]
     Dosage: UNK UKN, UNK
  3. RISPERDAL [Concomitant]
     Dosage: UNK UKN, UNK

REACTIONS (4)
  - FATIGUE [None]
  - PNEUMONIA [None]
  - CARDIO-RESPIRATORY ARREST [None]
  - URINARY TRACT INFECTION [None]
